FAERS Safety Report 8969021 (Version 1)
Quarter: 2012Q4

REPORT INFORMATION
  Report Type: 
  Country: US (occurrence: US)
  Receive Date: 20121218
  Receipt Date: 20121218
  Transmission Date: 20130627
  Serious: No
  Sender: FDA-Public Use
  Company Number: US-BRISTOL-MYERS SQUIBB COMPANY-16348054

PATIENT
  Age: 48 Year
  Sex: Female
  Weight: 72.56 kg

DRUGS (3)
  1. ABILIFY [Suspect]
     Indication: BIPOLAR DISORDER
     Route: 048
     Dates: start: 2007
  2. ABILIFY [Suspect]
     Indication: PSYCHOTIC DISORDER
     Route: 048
     Dates: start: 2007
  3. SEROQUEL [Concomitant]
     Route: 048

REACTIONS (2)
  - Blood glucose increased [Unknown]
  - Laziness [Unknown]
